FAERS Safety Report 7039332-X (Version None)
Quarter: 2010Q4

REPORT INFORMATION
  Report Type: 
  Country: None (occurrence: None)
  Receive Date: 20101012
  Receipt Date: 20100928
  Transmission Date: 20110411
  Serious: Yes (Other)
  Sender: FDA-Public Use
  Company Number: US-SANOFI-AVENTIS-2010SA058153

PATIENT
  Age: 84 Year
  Sex: Female

DRUGS (9)
  1. MULTAQ [Suspect]
     Indication: ATRIAL FIBRILLATION
     Route: 048
     Dates: start: 20100927, end: 20100928
  2. MULTAQ [Suspect]
     Route: 048
     Dates: start: 20100928, end: 20100928
  3. WARFARIN SODIUM [Concomitant]
  4. METOPROLOL [Concomitant]
  5. AMBIEN [Concomitant]
  6. XANAX [Concomitant]
  7. MAGNESIUM [Concomitant]
  8. FOLTX [Concomitant]
  9. VERAPAMIL [Concomitant]
     Dates: end: 20100101

REACTIONS (5)
  - ATRIAL FIBRILLATION [None]
  - BONE PAIN [None]
  - DIZZINESS [None]
  - JOINT SWELLING [None]
  - TINNITUS [None]
